FAERS Safety Report 8231093-1 (Version None)
Quarter: 2012Q1

REPORT INFORMATION
  Report Type: 
  Country: None (occurrence: None)
  Receive Date: 20120322
  Receipt Date: 20120322
  Transmission Date: 20120608
  Serious: Yes (Other)
  Sender: FDA-Public Use
  Company Number: None

PATIENT
  Sex: Female

DRUGS (1)
  1. BENZALKONIUM CHLORIDE [Suspect]
     Indication: DRUG THERAPY

REACTIONS (1)
  - HYPERSENSITIVITY [None]
